FAERS Safety Report 10766676 (Version 3)
Quarter: 2015Q1

REPORT INFORMATION
  Report Type: Spontaneous
  Country: SG (occurrence: SG)
  Receive Date: 20150205
  Receipt Date: 20150306
  Transmission Date: 20150721
  Serious: Yes (Other)
  Sender: FDA-Public Use
  Company Number: SG-ABBVIE-15K-141-1341443-00

PATIENT
  Age: 28 Year
  Sex: Male
  Weight: 69.7 kg

DRUGS (16)
  1. PREDNISOLONE. [Suspect]
     Active Substance: PREDNISOLONE
     Indication: RHEUMATOID ARTHRITIS
     Route: 048
     Dates: start: 20141031, end: 20150120
  2. ISONIAZID. [Suspect]
     Active Substance: ISONIAZID
     Indication: LATENT TUBERCULOSIS
     Route: 048
     Dates: start: 20141015, end: 20141114
  3. OMEPRAZOLE. [Concomitant]
     Active Substance: OMEPRAZOLE
     Dosage: FOR 8 WEEKS
     Route: 048
     Dates: start: 20141122
  4. CELEBREX [Concomitant]
     Active Substance: CELECOXIB
     Dosage: EVERY NIGHT FOR 8 WEEKS
     Route: 048
     Dates: start: 20141122, end: 20150120
  5. HUMIRA [Suspect]
     Active Substance: ADALIMUMAB
     Indication: RHEUMATOID ARTHRITIS
     Route: 058
     Dates: start: 20141013, end: 20141031
  6. PLAQUENIL [Concomitant]
     Active Substance: HYDROXYCHLOROQUINE SULFATE
     Indication: RHEUMATOID ARTHRITIS
     Dosage: FOR 4 WEEKS
     Route: 048
     Dates: start: 20141031, end: 20141122
  7. RIFAMPICIN [Concomitant]
     Active Substance: RIFAMPIN
     Indication: LATENT TUBERCULOSIS
     Route: 048
     Dates: start: 201412
  8. LIGNOCAINE [Concomitant]
     Active Substance: LIDOCAINE HYDROCHLORIDE
     Indication: ASPIRATION JOINT
     Route: 050
  9. PLAQUENIL [Concomitant]
     Active Substance: HYDROXYCHLOROQUINE SULFATE
     Dosage: EVERY MORNING FOR 8 WEEKS
     Route: 048
     Dates: start: 20141122, end: 20150120
  10. OMEPRAZOLE. [Concomitant]
     Active Substance: OMEPRAZOLE
     Indication: PRODUCT USED FOR UNKNOWN INDICATION
     Dosage: FOR 3 WEEKS
     Route: 048
     Dates: start: 20141031, end: 20150120
  11. CELEBREX [Concomitant]
     Active Substance: CELECOXIB
     Indication: PRODUCT USED FOR UNKNOWN INDICATION
     Dosage: FOR 3 WEEKS
     Route: 048
     Dates: start: 20141031, end: 20141122
  12. NAPROXEN. [Concomitant]
     Active Substance: NAPROXEN
     Indication: PRODUCT USED FOR UNKNOWN INDICATION
     Dates: start: 20150120
  13. METHOTREXATE [Concomitant]
     Active Substance: METHOTREXATE
     Indication: RHEUMATOID ARTHRITIS
     Route: 048
  14. PREDNISOLONE. [Suspect]
     Active Substance: PREDNISOLONE
     Route: 048
     Dates: start: 20150120
  15. PLAQUENIL [Concomitant]
     Active Substance: HYDROXYCHLOROQUINE SULFATE
     Route: 048
     Dates: start: 20150120
  16. TRIAMCINOLONE [Concomitant]
     Active Substance: TRIAMCINOLONE
     Indication: ASPIRATION JOINT
     Route: 014
     Dates: start: 20150124, end: 20150124

REACTIONS (14)
  - Joint range of motion decreased [Unknown]
  - Red blood cell sedimentation rate increased [Unknown]
  - Arthralgia [Unknown]
  - Dermatitis acneiform [Recovering/Resolving]
  - Rash pustular [Recovering/Resolving]
  - Arthralgia [Unknown]
  - Dermatitis acneiform [Recovering/Resolving]
  - Rash pustular [Unknown]
  - Latent tuberculosis [Unknown]
  - Joint effusion [Unknown]
  - Joint crepitation [Unknown]
  - Joint swelling [Unknown]
  - Synovitis [Unknown]
  - Joint swelling [Unknown]

NARRATIVE: CASE EVENT DATE: 2014
